FAERS Safety Report 19064856 (Version 2)
Quarter: 2021Q2

REPORT INFORMATION
  Report Type: Report from Study
  Country: US (occurrence: US)
  Receive Date: 20210326
  Receipt Date: 20210405
  Transmission Date: 20210717
  Serious: Yes (Death, Life-Threatening, Hospitalization, Disabling, Other)
  Sender: FDA-Public Use
  Company Number: US-GILEAD-2020-0467816

PATIENT
  Age: 77 Year
  Sex: Male
  Weight: 89.7 kg

DRUGS (49)
  1. ENOXAPARIN [Concomitant]
     Active Substance: ENOXAPARIN
  2. TIOTROPIUM [Concomitant]
     Active Substance: TIOTROPIUM
  3. COMBIVENT [Concomitant]
     Active Substance: ALBUTEROL SULFATE\IPRATROPIUM BROMIDE
  4. ATORVASTATIN [Concomitant]
     Active Substance: ATORVASTATIN
  5. HEPARIN [Concomitant]
     Active Substance: HEPARIN SODIUM
  6. LACRILUBE [Concomitant]
  7. CEFDINIR. [Concomitant]
     Active Substance: CEFDINIR
     Indication: COVID-19
     Dosage: UNK
     Dates: start: 20200415, end: 20200422
  8. AZITHROMYCIN ANHYDROUS. [Concomitant]
     Active Substance: AZITHROMYCIN ANHYDROUS
     Indication: COVID-19
     Dosage: UNK
     Dates: start: 20200415, end: 20200420
  9. FUROSEMIDE. [Concomitant]
     Active Substance: FUROSEMIDE
  10. NOREPINEPHRINE. [Concomitant]
     Active Substance: NOREPINEPHRINE
  11. CONVALESCENT PLASMA COVID?19 [Concomitant]
  12. REMDESIVIR. [Suspect]
     Active Substance: REMDESIVIR
     Dosage: 100 MG, QD
     Route: 042
     Dates: start: 20200418, end: 20200423
  13. INSULIN HUMAN [Concomitant]
     Active Substance: INSULIN HUMAN
  14. POLYETHYLENE GLYCOL [MACROGOL] [Concomitant]
     Active Substance: POLYETHYLENE GLYCOLS
  15. ALTEPLASE. [Concomitant]
     Active Substance: ALTEPLASE
  16. BENZONATATE. [Concomitant]
     Active Substance: BENZONATATE
  17. CISATRACURIUM. [Concomitant]
     Active Substance: CISATRACURIUM
  18. SENNA [SENNOSIDE A+B] [Concomitant]
     Active Substance: SENNOSIDES A AND B
  19. SODIUM CITRATE. [Concomitant]
     Active Substance: SODIUM CITRATE
  20. MONTELUKAST [Concomitant]
     Active Substance: MONTELUKAST SODIUM
  21. PROTONIX [Concomitant]
     Active Substance: PANTOPRAZOLE SODIUM
  22. TOLTERODINE [Concomitant]
     Active Substance: TOLTERODINE
  23. METHYLPREDNISOLONE. [Concomitant]
     Active Substance: METHYLPREDNISOLONE
  24. EPINEPHRINE. [Concomitant]
     Active Substance: EPINEPHRINE
  25. CALCIUM GLUCONATE. [Concomitant]
     Active Substance: CALCIUM GLUCONATE
  26. REMDESIVIR. [Suspect]
     Active Substance: REMDESIVIR
     Indication: COVID-19
     Dosage: 200 MG, QD
     Route: 042
     Dates: start: 20200417, end: 20200417
  27. VOLTAREN ACTI [Concomitant]
     Active Substance: DICLOFENAC POTASSIUM
     Indication: MUSCULOSKELETAL PAIN
  28. HYDROXYCHLOROQUINE [Concomitant]
     Active Substance: HYDROXYCHLOROQUINE
     Indication: COVID-19
     Dosage: UNK
     Dates: start: 20200415, end: 20200416
  29. PREDNISONE. [Concomitant]
     Active Substance: PREDNISONE
  30. INSULIN ASPART [Concomitant]
     Active Substance: INSULIN ASPART
  31. MUPIROCIN. [Concomitant]
     Active Substance: MUPIROCIN
  32. INSULIN GLARGINE [Concomitant]
     Active Substance: INSULIN GLARGINE
  33. VASOPRESSIN. [Concomitant]
     Active Substance: VASOPRESSIN
  34. SERTRALINE [Concomitant]
     Active Substance: SERTRALINE HYDROCHLORIDE
  35. ASPIRIN (E.C.) [Concomitant]
     Active Substance: ASPIRIN
     Indication: COVID-19
     Dosage: UNK
     Dates: start: 20200415, end: 20200422
  36. TYLENOL [Concomitant]
     Active Substance: ACETAMINOPHEN
  37. SODIUM PHOSPHATE [Concomitant]
     Active Substance: SODIUM PHOSPHATE
  38. MIDAZOLAM. [Concomitant]
     Active Substance: MIDAZOLAM
  39. PANTOPRAZOLE [Concomitant]
     Active Substance: PANTOPRAZOLE
  40. IPRATROPIUM [Concomitant]
     Active Substance: IPRATROPIUM
  41. ACETAMINOPHEN. [Concomitant]
     Active Substance: ACETAMINOPHEN
  42. ERYTHROPOIETIN [Concomitant]
     Active Substance: ERYTHROPOIETIN
  43. GUAIFENESIN + CODEINE [Concomitant]
  44. POTASSIUM CHLORIDE. [Concomitant]
     Active Substance: POTASSIUM CHLORIDE
  45. MUCINEX [Concomitant]
     Active Substance: GUAIFENESIN
  46. BISACODYL. [Concomitant]
     Active Substance: BISACODYL
  47. ALBUMIN [Concomitant]
     Active Substance: ALBUMIN HUMAN
  48. DEXMEDETOMIDINE. [Concomitant]
     Active Substance: DEXMEDETOMIDINE
  49. PHENYLEPHRINE [Concomitant]
     Active Substance: PHENYLEPHRINE HYDROCHLORIDE

REACTIONS (8)
  - Respiratory failure [Fatal]
  - Anaemia [Not Recovered/Not Resolved]
  - Sepsis [Fatal]
  - Blood urea increased [Recovered/Resolved]
  - Multi-organ disorder [Fatal]
  - Hyperphosphataemia [Recovered/Resolved]
  - Hypernatraemia [Recovered/Resolved]
  - Leukocytosis [Not Recovered/Not Resolved]

NARRATIVE: CASE EVENT DATE: 20200418
